FAERS Safety Report 9762700 (Version 2)
Quarter: 2013Q4

REPORT INFORMATION
  Report Type: Report from Study
  Country: CA (occurrence: CA)
  Receive Date: 20131216
  Receipt Date: 20131216
  Transmission Date: 20140711
  Serious: Yes (Hospitalization)
  Sender: FDA-Public Use
  Company Number: PHHY2013CA091441

PATIENT
  Age: 68 Year
  Sex: Female

DRUGS (2)
  1. SANDOSTATIN LAR [Suspect]
     Indication: OVARIAN NEOPLASM
     Dosage: 20 MG, QMO
     Route: 030
     Dates: start: 20130815
  2. SANDOSTATIN LAR [Suspect]
     Dosage: 30 MG, QMO
     Route: 030

REACTIONS (4)
  - Terminal state [Unknown]
  - Intestinal obstruction [Unknown]
  - Dyspepsia [Unknown]
  - Irritability [Unknown]
